FAERS Safety Report 8791341 (Version 1)
Quarter: 2012Q4

REPORT INFORMATION
  Report Type: Spontaneous
  Country: US (occurrence: None)
  Receive Date: 20120911
  Receipt Date: 20120911
  Transmission Date: 20130627
  Serious: Yes (Death, Life-Threatening)
  Sender: FDA-Public Use
  Company Number: AUR-APL-2012-03835

PATIENT
  Age: 23 Year
  Sex: Female

DRUGS (12)
  1. LEVETIRACETAM [Suspect]
     Indication: STATUS EPILEPTICUS
     Route: 042
  2. DIVALPROEX SODIUM [Suspect]
     Indication: STATUS EPILEPTICUS
  3. MIDAZOLAM [Suspect]
     Indication: STATUS EPILEPTICUS
     Route: 041
  4. PROPOFOL [Suspect]
     Indication: STATUS EPILEPTICUS
  5. METHYLPREDNISOLONE [Suspect]
     Indication: STATUS EPILEPTICUS
  6. PENTOBARBITAL [Suspect]
     Indication: STATUS EPILEPTICUS
  7. PYRIDOXINE [Suspect]
     Indication: STATUS EPILEPTICUS
  8. LORAZEPAM [Concomitant]
  9. ACYCLOVIR (ACICLOVIR) [Concomitant]
  10. VANCOMYCIN [Concomitant]
  11. CEFTRIAXONE [Concomitant]
  12. FOSPHENYTOIN [Concomitant]

REACTIONS (8)
  - Drug screen positive [None]
  - Cerebrosclerosis [None]
  - Brain oedema [None]
  - Brain herniation [None]
  - Brain stem haemorrhage [None]
  - Gliosis [None]
  - No therapeutic response [None]
  - Convulsion [None]
